FAERS Safety Report 8872483 (Version 1)
Quarter: 2012Q4

REPORT INFORMATION
  Report Type: 
  Country: US (occurrence: US)
  Receive Date: 20121030
  Receipt Date: 20121030
  Transmission Date: 20130627
  Serious: Yes (Other)
  Sender: FDA-Public Use
  Company Number: US-MYLANLABS-2007S1000714

PATIENT
  Age: 69 Year
  Sex: Female
  Weight: 77.11 kg

DRUGS (2)
  1. METHOTREXATE [Suspect]
     Indication: RHEUMATOID ARTHRITIS
     Route: 048
     Dates: start: 20061110, end: 20070119
  2. FOLIC ACID [Concomitant]

REACTIONS (26)
  - Chest pain [Recovering/Resolving]
  - Pain in extremity [Recovering/Resolving]
  - Oedema peripheral [Recovering/Resolving]
  - Nodule [Recovered/Resolved]
  - Mental status changes [Recovering/Resolving]
  - Intraocular pressure increased [Recovering/Resolving]
  - Nerve injury [Recovering/Resolving]
  - Hallucination [Recovering/Resolving]
  - Swelling face [Recovering/Resolving]
  - Cough [Recovering/Resolving]
  - Ear discomfort [Recovering/Resolving]
  - Visual impairment [Recovering/Resolving]
  - Vitreous floaters [Recovering/Resolving]
  - Muscle tightness [Recovering/Resolving]
  - Paraesthesia [Recovering/Resolving]
  - Pain [Recovering/Resolving]
  - Ear pain [Recovering/Resolving]
  - Obsessive-compulsive disorder [Unknown]
  - Mouth ulceration [Recovering/Resolving]
  - Gait disturbance [Recovering/Resolving]
  - Paraesthesia oral [Recovering/Resolving]
  - Tongue blistering [Recovering/Resolving]
  - Lip blister [Recovering/Resolving]
  - Lip pain [Not Recovered/Not Resolved]
  - Lip dry [Recovering/Resolving]
  - Lip discolouration [Recovering/Resolving]
